FAERS Safety Report 6875303-1 (Version None)
Quarter: 2010Q3

REPORT INFORMATION
  Report Type: 
  Country: None (occurrence: None)
  Receive Date: 20100727
  Receipt Date: 20100714
  Transmission Date: 20110219
  Serious: Yes (Hospitalization, Other)
  Sender: FDA-Public Use
  Company Number: US-PFIZER INC-2010087813

PATIENT
  Sex: Female
  Weight: 59.864 kg

DRUGS (6)
  1. XANAX [Suspect]
     Dosage: UNK
  2. ZOLOFT [Suspect]
     Indication: ANXIETY
     Dosage: 50 MG, 2X/DAY
     Route: 048
     Dates: start: 20091201, end: 20100301
  3. ZOLOFT [Suspect]
     Indication: BIPOLAR DISORDER
  4. ZOLOFT [Suspect]
     Indication: BIPOLAR I DISORDER
  5. ZOLOFT [Suspect]
     Indication: PSYCHOTIC DISORDER
  6. ZOLOFT [Suspect]
     Indication: ANTIDEPRESSANT THERAPY

REACTIONS (10)
  - AMNESIA [None]
  - ANXIETY [None]
  - BIPOLAR DISORDER [None]
  - DEAFNESS [None]
  - DRUG WITHDRAWAL SYNDROME [None]
  - HALLUCINATION [None]
  - MENTAL DISORDER [None]
  - PARANOIA [None]
  - PSYCHOTIC DISORDER [None]
  - SEROTONIN SYNDROME [None]
